FAERS Safety Report 4687438-2 (Version None)
Quarter: 2005Q2

REPORT INFORMATION
  Report Type: 
  Country: None (occurrence: None)
  Receive Date: 20050609
  Receipt Date: 20050609
  Transmission Date: 20051028
  Serious: Yes (Hospitalization, Disabling)
  Sender: FDA-Public Use
  Company Number: None

PATIENT
  Age: 48 Year
  Sex: Female
  Weight: 68.0396 kg

DRUGS (1)
  1. LEVAQUIN [Suspect]
     Indication: PROPHYLAXIS
     Dates: start: 20041130, end: 20041204

REACTIONS (5)
  - ARTHRALGIA [None]
  - EYE PAIN [None]
  - HEADACHE [None]
  - TENDON RUPTURE [None]
  - VISUAL ACUITY REDUCED [None]
